FAERS Safety Report 7755476-9 (Version None)
Quarter: 2011Q3

REPORT INFORMATION
  Report Type: 
  Country: None (occurrence: None)
  Receive Date: 20110916
  Receipt Date: 20110912
  Transmission Date: 20111222
  Serious: Yes (Hospitalization)
  Sender: FDA-Public Use
  Company Number: IT-PFIZER INC-2011204100

PATIENT
  Age: 42 Year
  Sex: Female

DRUGS (2)
  1. DESLORATADINE [Concomitant]
     Indication: DERMATITIS ATOPIC
     Dosage: UNK
  2. LEVONORGESTREL AND ETHINYL ESTRADIOL [Suspect]
     Indication: ORAL CONTRACEPTION
     Dosage: 1 DOSAGE UNIT, CYCLIC
     Route: 048
     Dates: start: 20110201, end: 20110726

REACTIONS (1)
  - HEPATITIS CHOLESTATIC [None]
